FAERS Safety Report 8897364 (Version 1)
Quarter: 2012Q4

REPORT INFORMATION
  Report Type: 
  Country: US (occurrence: US)
  Receive Date: 20121108
  Receipt Date: 20121108
  Transmission Date: 20130627
  Serious: No
  Sender: FDA-Public Use
  Company Number: US-AMGEN-USASP2012027287

PATIENT
  Age: 19 Year
  Sex: Female
  Weight: 54.42 kg

DRUGS (1)
  1. ENBREL [Suspect]
     Indication: PSORIATIC ARTHROPATHY
     Dosage: 25 mg, 2 times/wk
     Route: 058
     Dates: start: 20070101

REACTIONS (2)
  - Injection site urticaria [Recovering/Resolving]
  - Injection site pruritus [Recovering/Resolving]
